FAERS Safety Report 9381927 (Version 4)
Quarter: 2014Q1

REPORT INFORMATION
  Report Type: Report from Study
  Country: US (occurrence: US)
  Receive Date: 20130703
  Receipt Date: 20140222
  Transmission Date: 20141002
  Serious: Yes (Disabling)
  Sender: FDA-Public Use
  Company Number: US-ROCHE-1242529

PATIENT
  Age: 89 Year
  Sex: Male

DRUGS (3)
  1. LUCENTIS [Suspect]
     Indication: AGE-RELATED MACULAR DEGENERATION
     Route: 065
     Dates: start: 20130626, end: 20131113
  2. ZYMAXID [Concomitant]
     Route: 047
     Dates: start: 20130626
  3. DORZOLAMIDE [Concomitant]
     Route: 047
     Dates: start: 20130626

REACTIONS (3)
  - Blindness [Recovered/Resolved]
  - Visual acuity reduced [Recovered/Resolved]
  - Haemorrhage [Recovered/Resolved]
